FAERS Safety Report 17245707 (Version 1)
Quarter: 2020Q1

REPORT INFORMATION
  Report Type: Spontaneous
  Country: US (occurrence: US)
  Receive Date: 20200108
  Receipt Date: 20200108
  Transmission Date: 20200409
  Serious: No
  Sender: FDA-Public Use
  Company Number: US-ASTRAZENECA-2019SF80562

PATIENT

DRUGS (1)
  1. BEVESPI AEROSPHERE [Suspect]
     Active Substance: FORMOTEROL FUMARATE\GLYCOPYRROLATE
     Indication: DYSPNOEA
     Dosage: UNKNOWN
     Route: 055

REACTIONS (2)
  - Product dose omission [Unknown]
  - Dyspnoea [Unknown]
